FAERS Safety Report 13134282 (Version 2)
Quarter: 2018Q2

REPORT INFORMATION
  Report Type: Spontaneous
  Country: US (occurrence: US)
  Receive Date: 20170120
  Receipt Date: 20180508
  Transmission Date: 20180711
  Serious: No
  Sender: FDA-Public Use
  Company Number: US-PFIZER INC-2017024277

PATIENT
  Age: 49 Year
  Sex: Female

DRUGS (1)
  1. XELJANZ [Suspect]
     Active Substance: TOFACITINIB CITRATE
     Dosage: 5 MG, UNK

REACTIONS (17)
  - Fatigue [Unknown]
  - Joint noise [Unknown]
  - Joint stiffness [Unknown]
  - Joint swelling [Unknown]
  - Musculoskeletal stiffness [Unknown]
  - Musculoskeletal pain [Unknown]
  - Malaise [Unknown]
  - Muscular weakness [Unknown]
  - Sleep disorder [Unknown]
  - Synovitis [Unknown]
  - Ulcer [Unknown]
  - Back pain [Unknown]
  - Myalgia [Unknown]
  - Somnolence [Unknown]
  - Arthralgia [Unknown]
  - Muscle spasms [Unknown]
  - Disturbance in attention [Unknown]
